FAERS Safety Report 17203315 (Version 1)
Quarter: 2019Q4

REPORT INFORMATION
  Report Type: Report from Study
  Country: ES (occurrence: ES)
  Receive Date: 20191226
  Receipt Date: 20191226
  Transmission Date: 20200122
  Serious: Yes (Other)
  Sender: FDA-Public Use
  Company Number: ES-JNJFOC-20191231301

PATIENT
  Age: 43 Year
  Sex: Female

DRUGS (2)
  1. STELARA [Suspect]
     Active Substance: USTEKINUMAB
     Indication: PSORIASIS
     Dosage: 300
     Route: 058
     Dates: start: 20120908, end: 20131122
  2. REMICADE [Suspect]
     Active Substance: INFLIXIMAB
     Indication: PSORIASIS
     Route: 058
     Dates: start: 20140205, end: 20140519

REACTIONS (1)
  - Ovarian endometrioid carcinoma [Not Recovered/Not Resolved]

NARRATIVE: CASE EVENT DATE: 201405
